FAERS Safety Report 11918362 (Version 2)
Quarter: 2016Q1

REPORT INFORMATION
  Report Type: Spontaneous
  Country: JP (occurrence: JP)
  Receive Date: 20160115
  Receipt Date: 20160122
  Transmission Date: 20160526
  Serious: Yes (Life-Threatening, Hospitalization, Other)
  Sender: FDA-Public Use
  Company Number: JP-TAKEDA-2016TJP000497AA

PATIENT
  Age: 30 Year
  Sex: Male
  Weight: 92 kg

DRUGS (3)
  1. METGLUCO [Concomitant]
     Active Substance: METFORMIN HYDROCHLORIDE
     Indication: DIABETES MELLITUS
     Dosage: 750 MG, TID
     Route: 048
     Dates: end: 20160104
  2. ACTOS [Suspect]
     Active Substance: PIOGLITAZONE HYDROCHLORIDE
     Indication: DIABETES MELLITUS
     Dosage: 30 MG, QD
     Route: 048
     Dates: start: 20151226, end: 20160104
  3. SUGLAT [Concomitant]
     Active Substance: IPRAGLIFLOZIN L-PROLINE
     Indication: DIABETES MELLITUS
     Dosage: 50 MG, QD
     Route: 048
     Dates: end: 20160104

REACTIONS (3)
  - Altered state of consciousness [Recovered/Resolved]
  - Rhabdomyolysis [Recovered/Resolved]
  - Sepsis [Recovered/Resolved]

NARRATIVE: CASE EVENT DATE: 20160104
